FAERS Safety Report 19222419 (Version 1)
Quarter: 2021Q2

REPORT INFORMATION
  Report Type: Spontaneous
  Country: US (occurrence: US)
  Receive Date: 20210506
  Receipt Date: 20210506
  Transmission Date: 20210717
  Serious: Yes (Other)
  Sender: FDA-Public Use
  Company Number: None

PATIENT
  Age: 73 Year
  Sex: Male
  Weight: 86.31 kg

DRUGS (8)
  1. ELIQUIS [Concomitant]
     Active Substance: APIXABAN
  2. ONDANSETRON [Concomitant]
     Active Substance: ONDANSETRON
  3. FOLIC ACID. [Concomitant]
     Active Substance: FOLIC ACID
  4. CISPLATIN. [Concomitant]
     Active Substance: CISPLATIN
  5. GEMCITABINE. [Concomitant]
     Active Substance: GEMCITABINE
  6. COLACE [Concomitant]
     Active Substance: DOCUSATE SODIUM
  7. CAPECITABINE. [Suspect]
     Active Substance: CAPECITABINE
     Indication: GALLBLADDER CANCER
     Route: 048
     Dates: start: 20201204
  8. SIMETHICONE (DIMETHICONE) [Concomitant]
     Active Substance: DIMETHICONE

REACTIONS (2)
  - Constipation [None]
  - Nausea [None]

NARRATIVE: CASE EVENT DATE: 20210506
